FAERS Safety Report 15155889 (Version 1)
Quarter: 2018Q3

REPORT INFORMATION
  Report Type: Spontaneous
  Country: US (occurrence: US)
  Receive Date: 20180717
  Receipt Date: 20180717
  Transmission Date: 20181010
  Serious: Yes (Other)
  Sender: FDA-Public Use
  Company Number: US-US WORLDMEDS, LLC-STA_00020494

PATIENT
  Age: 33 Year
  Sex: Male

DRUGS (2)
  1. ENDOMYCIN [Suspect]
     Active Substance: NEOMYCIN
     Indication: PNEUMONIA
     Dates: start: 20090405
  2. APOMORPHINE HYDROCHLORIDE [Suspect]
     Active Substance: APOMORPHINE HYDROCHLORIDE
     Indication: PARKINSON^S DISEASE
     Dosage: 3MG DAILY AS NEEDED
     Dates: start: 200812

REACTIONS (11)
  - Myocardial infarction [Unknown]
  - Cough [Unknown]
  - Pain in extremity [Unknown]
  - Nausea [Unknown]
  - Dysgeusia [Unknown]
  - Antiphospholipid syndrome [Unknown]
  - Pulmonary embolism [Recovered/Resolved]
  - Drug interaction [Recovered/Resolved]
  - Musculoskeletal pain [Unknown]
  - Vomiting [Unknown]
  - Pleural effusion [Unknown]

NARRATIVE: CASE EVENT DATE: 20090326
